FAERS Safety Report 15850843 (Version 4)
Quarter: 2019Q2

REPORT INFORMATION
  Report Type: Spontaneous
  Country: AU (occurrence: AU)
  Receive Date: 20190121
  Receipt Date: 20190410
  Transmission Date: 20190711
  Serious: Yes (Death, Hospitalization, Other)
  Sender: FDA-Public Use
  Company Number: AU-BEH-2019098529

PATIENT
  Age: 70 Year
  Sex: Female

DRUGS (2)
  1. PRIVIGEN [Suspect]
     Active Substance: HUMAN IMMUNOGLOBULIN G
     Indication: IMMUNE THROMBOCYTOPENIC PURPURA
     Dosage: 40 G, SINGLE
     Route: 042
     Dates: start: 20190106
  2. PRIVIGEN [Suspect]
     Active Substance: HUMAN IMMUNOGLOBULIN G
     Dosage: 95 G, PREVIOUS DOSE
     Route: 065

REACTIONS (7)
  - Cryptococcal fungaemia [Fatal]
  - Oxygen saturation decreased [Fatal]
  - Pneumonia cryptococcal [Fatal]
  - Pleural effusion [Unknown]
  - Chest X-ray abnormal [Unknown]
  - Lung infection [Fatal]
  - Respiratory distress [Recovered/Resolved]

NARRATIVE: CASE EVENT DATE: 20190106
